FAERS Safety Report 24435373 (Version 1)
Quarter: 2024Q4

REPORT INFORMATION
  Report Type: Report from Study
  Country: US (occurrence: US)
  Receive Date: 20241015
  Receipt Date: 20241015
  Transmission Date: 20250115
  Serious: Yes (Hospitalization)
  Sender: ETON PHARMACEUTICALS, INC
  Company Number: US-ETON PHARMACEUTICALS, INC-2024ETO000266

PATIENT

DRUGS (1)
  1. ALKINDI SPRINKLE [Suspect]
     Active Substance: HYDROCORTISONE
     Indication: Adrenal insufficiency
     Dosage: 5 MILLIGRAM, EVERY 6 TO 8 HOURS AS NEEDED
     Route: 048

REACTIONS (3)
  - Regurgitation [Unknown]
  - Tremor [Unknown]
  - Off label use [Unknown]

NARRATIVE: CASE EVENT DATE: 20240930
